FAERS Safety Report 13836048 (Version 1)
Quarter: 2017Q3

REPORT INFORMATION
  Report Type: Spontaneous
  Country: US (occurrence: US)
  Receive Date: 20170804
  Receipt Date: 20170804
  Transmission Date: 20171127
  Serious: No
  Sender: FDA-Public Use
  Company Number: US-PERRIGO-16US020081

PATIENT
  Age: 19 Year
  Sex: Female
  Weight: 78.91 kg

DRUGS (1)
  1. IBUPROFEN. [Suspect]
     Active Substance: IBUPROFEN
     Indication: PRODUCT USED FOR UNKNOWN INDICATION
     Dosage: UNKNOWN, UNKNOWN
     Route: 048
     Dates: start: 201608

REACTIONS (2)
  - Abdominal discomfort [Unknown]
  - Drug ineffective [Unknown]

NARRATIVE: CASE EVENT DATE: 201608
